FAERS Safety Report 13717977 (Version 3)
Quarter: 2018Q1

REPORT INFORMATION
  Report Type: Spontaneous
  Country: US (occurrence: US)
  Receive Date: 20170705
  Receipt Date: 20180315
  Transmission Date: 20180508
  Serious: Yes (Hospitalization, Other)
  Sender: FDA-Public Use
  Company Number: US-AMGEN-USASP2017098355

PATIENT
  Age: 71 Year
  Sex: Female

DRUGS (1)
  1. PROLIA [Suspect]
     Active Substance: DENOSUMAB
     Indication: OSTEOPOROSIS
     Dosage: UNK
     Route: 065

REACTIONS (13)
  - Foot fracture [Unknown]
  - Head injury [Unknown]
  - Osteoarthritis [Unknown]
  - Pain [Unknown]
  - Spinal column injury [Unknown]
  - Spinal operation [Unknown]
  - Paranasal sinus hypersecretion [Not Recovered/Not Resolved]
  - Joint dislocation postoperative [Unknown]
  - Fall [Unknown]
  - Spinal compression fracture [Unknown]
  - Transient ischaemic attack [Unknown]
  - Traumatic fracture [Recovered/Resolved]
  - Drug dose omission [Unknown]

NARRATIVE: CASE EVENT DATE: 201606
